FAERS Safety Report 17450115 (Version 1)
Quarter: 2020Q1

REPORT INFORMATION
  Report Type: Spontaneous
  Country: US (occurrence: US)
  Receive Date: 20200208
  Receipt Date: 20200208
  Transmission Date: 20200409
  Serious: Yes (Hospitalization)
  Sender: FDA-Public Use
  Company Number: None

PATIENT
  Age: 76 Year
  Sex: Female

DRUGS (1)
  1. AFINITOR [Suspect]
     Active Substance: EVEROLIMUS
     Indication: BREAST CANCER
     Route: 048
     Dates: start: 20161024, end: 20200120

REACTIONS (4)
  - Platelet count decreased [None]
  - Haemorrhage [None]
  - Thrombotic microangiopathy [None]
  - Confusional state [None]

NARRATIVE: CASE EVENT DATE: 20200120
